FAERS Safety Report 25760467 (Version 3)
Quarter: 2025Q3

REPORT INFORMATION
  Report Type: Spontaneous
  Country: EU (occurrence: EU)
  Receive Date: 20250904
  Receipt Date: 20250917
  Transmission Date: 20251021
  Serious: Yes (Other)
  Sender: PFIZER
  Company Number: EU-MLMSERVICE-20250822-PI624274-00082-1

PATIENT
  Age: 10 Year
  Sex: Male

DRUGS (5)
  1. CARBOPLATIN [Suspect]
     Active Substance: CARBOPLATIN
     Indication: Astrocytoma, low grade
     Dates: start: 202202, end: 2022
  2. CARBOPLATIN [Suspect]
     Active Substance: CARBOPLATIN
     Indication: Metastases to spine
  3. CARBOPLATIN [Suspect]
     Active Substance: CARBOPLATIN
     Indication: Malignant neoplasm progression
  4. VINCRISTINE [Concomitant]
     Active Substance: VINCRISTINE
     Indication: Astrocytoma, low grade
     Dates: start: 202202, end: 2022
  5. VINCRISTINE [Concomitant]
     Active Substance: VINCRISTINE
     Indication: Metastases to spine

REACTIONS (6)
  - Haematotoxicity [Unknown]
  - Gastrointestinal toxicity [Unknown]
  - Metastases to spine [Unknown]
  - Malignant neoplasm progression [Unknown]
  - Astrocytoma, low grade [Unknown]
  - Off label use [Unknown]

NARRATIVE: CASE EVENT DATE: 20220101
